FAERS Safety Report 4275548-3 (Version None)
Quarter: 2004Q1

REPORT INFORMATION
  Report Type: 
  Country: None (occurrence: None)
  Receive Date: 20040121
  Receipt Date: 20020402
  Transmission Date: 20041129
  Serious: Yes (Hospitalization, Other)
  Sender: FDA-Public Use
  Company Number: US-BRISTOL-MYERS SQUIBB COMPANY-11798550

PATIENT
  Age: 68 Year
  Sex: Male

DRUGS (6)
  1. GATIFLOXACIN [Suspect]
     Dosage: MOST RECENT DOSE PRIOR TO THE EVENT WAS ON 23-MAR-2002.
     Route: 048
     Dates: start: 20011219
  2. ATORVASTATIN [Suspect]
     Dosage: MOST RECENT DOSE PRIOR TO THE EVENT WAS ON 23-MAR-2002.
     Route: 048
     Dates: start: 20011204
  3. ATENOLOL [Suspect]
     Dosage: THERAPY DISCONTINUED 48 HOURS PRIOR TO ONSET.
     Route: 048
     Dates: start: 20000918, end: 20020322
  4. NITRATES [Concomitant]
     Dates: start: 20000922
  5. AAS [Concomitant]
     Route: 048
     Dates: start: 20000918
  6. CLOPIDOGREL BISULFATE [Concomitant]
     Route: 048
     Dates: start: 20011128

REACTIONS (2)
  - ANGINA UNSTABLE [None]
  - ATRIAL FIBRILLATION [None]
